FAERS Safety Report 12613236 (Version 1)
Quarter: 2016Q3

REPORT INFORMATION
  Report Type: Spontaneous
  Country: US (occurrence: None)
  Receive Date: 20160801
  Receipt Date: 20160801
  Transmission Date: 20161109
  Serious: Yes (Life-Threatening)
  Sender: FDA-Public Use
  Company Number: None

PATIENT
  Age: 62 Year
  Sex: Male
  Weight: 97.6 kg

DRUGS (1)
  1. HURRICANE SPRAY [Suspect]
     Active Substance: BENZOCAINE
     Indication: GASTROINTESTINAL TUBE INSERTION
     Route: 048

REACTIONS (1)
  - Respiratory arrest [None]

NARRATIVE: CASE EVENT DATE: 20160730
